FAERS Safety Report 7405265-X (Version None)
Quarter: 2011Q1

REPORT INFORMATION
  Report Type: 
  Country: None (occurrence: None)
  Receive Date: 20110330
  Receipt Date: 20110310
  Transmission Date: 20110831
  Serious: Yes (Disabling)
  Sender: FDA-Public Use
  Company Number: 2110898-2011-00031

PATIENT
  Age: 56 Year
  Sex: Female

DRUGS (3)
  1. ,, [Concomitant]
  2. ASPIRIN [Concomitant]
  3. 3M ESPE PERIOMED 0.63% STANNOUS FLUORIDE ORAL RINSE [Suspect]
     Dosage: TOPICAL, ORAL RINSE
     Route: 048

REACTIONS (1)
  - AGEUSIA [None]
